FAERS Safety Report 9126960 (Version 11)
Quarter: 2015Q3

REPORT INFORMATION
  Report Type: Spontaneous
  Country: US (occurrence: US)
  Receive Date: 20130122
  Receipt Date: 20150716
  Transmission Date: 20151125
  Serious: Yes (Death, Hospitalization, Other)
  Sender: FDA-Public Use
  Company Number: US-GLAXOSMITHKLINE-A0994857A

PATIENT
  Age: 53 Year
  Sex: Female

DRUGS (12)
  1. FLOLAN [Suspect]
     Active Substance: EPOPROSTENOL SODIUM
     Dosage: UNK
     Dates: start: 20081007
  2. OPSUMIT [Concomitant]
     Active Substance: MACITENTAN
  3. FLOLAN [Suspect]
     Active Substance: EPOPROSTENOL SODIUM
     Dosage: 15.1 NG/KG/MIN CONTINUOUSLY
     Route: 042
  4. FLOLAN [Suspect]
     Active Substance: EPOPROSTENOL SODIUM
     Dosage: DOSE: 15.1 NG/KG/MIN (CONCENTRATION 15,000 NG/ML, PUMP RATE: 85 ML/DAY, VIAL STRENGTH: 1.5MG)
     Dates: start: 20081003
  5. FLOLAN [Suspect]
     Active Substance: EPOPROSTENOL SODIUM
     Dosage: UNK
     Dates: start: 20081007
  6. FLOLAN [Suspect]
     Active Substance: EPOPROSTENOL SODIUM
     Dosage: UNK
     Dates: start: 20081007
  7. FLOLAN [Suspect]
     Active Substance: EPOPROSTENOL SODIUM
     Dosage: UNK
     Dates: start: 20081003
  8. TRACLEER [Concomitant]
     Active Substance: BOSENTAN
  9. COUMADIN [Concomitant]
     Active Substance: WARFARIN SODIUM
  10. FLOLAN [Suspect]
     Active Substance: EPOPROSTENOL SODIUM
     Indication: PULMONARY ARTERIAL HYPERTENSION
     Dosage: DOSE: 15.1 NG/KG/MIN (CONCENTRATION 15,000 NG/ML, PUMP RATE UNKNOWN, VIAL STRENGTH: 1.5MG)
     Route: 042
     Dates: start: 20081007
  11. FLOLAN [Suspect]
     Active Substance: EPOPROSTENOL SODIUM
     Dosage: UNK
     Dates: start: 20081007
  12. FLOLAN [Suspect]
     Active Substance: EPOPROSTENOL SODIUM
     Dosage: 15.1 NG/KG/MIN, UNK
     Dates: start: 20081006

REACTIONS (13)
  - Medical device complication [Recovered/Resolved]
  - Abdominal distension [Unknown]
  - Lower respiratory tract infection [Recovered/Resolved]
  - Surgery [Recovered/Resolved]
  - Death [Fatal]
  - Chest discomfort [Recovered/Resolved]
  - Nasal congestion [Recovered/Resolved]
  - Dizziness [Recovered/Resolved]
  - Catheter site discharge [Recovered/Resolved]
  - Seasonal allergy [Recovered/Resolved]
  - Catheter placement [Unknown]
  - Device dislocation [Unknown]
  - Abdominal discomfort [Unknown]

NARRATIVE: CASE EVENT DATE: 20140716
